FAERS Safety Report 21411249 (Version 2)
Quarter: 2022Q4

REPORT INFORMATION
  Report Type: Spontaneous
  Country: JP (occurrence: None)
  Receive Date: 20221005
  Receipt Date: 20221103
  Transmission Date: 20230113
  Serious: Yes (Hospitalization)
  Sender: FDA-Public Use
  Company Number: 2022A334385

PATIENT
  Age: 83 Year
  Sex: Female

DRUGS (2)
  1. IRESSA [Suspect]
     Active Substance: GEFITINIB
     Indication: Non-small cell lung cancer
     Dosage: DOSE UNKNOWN
     Route: 048
  2. IRESSA [Suspect]
     Active Substance: GEFITINIB
     Indication: Non-small cell lung cancer
     Dosage: DOSE UNKNOWN, EVERY TWO DAYS
     Route: 048

REACTIONS (3)
  - Impaired healing [Not Recovered/Not Resolved]
  - Extremity necrosis [Unknown]
  - Off label use [Unknown]
